FAERS Safety Report 17353872 (Version 2)
Quarter: 2020Q1

REPORT INFORMATION
  Report Type: Report from Study
  Country: CA (occurrence: CA)
  Receive Date: 20200131
  Receipt Date: 20200206
  Transmission Date: 20200409
  Serious: Yes (Other)
  Sender: FDA-Public Use
  Company Number: CA-GLAXOSMITHKLINE-CA2020AMR015583

PATIENT
  Sex: Female

DRUGS (1)
  1. MEPOLIZUMAB [Suspect]
     Active Substance: MEPOLIZUMAB
     Indication: ASTHMA
     Dosage: 100 MG,
     Route: 042
     Dates: start: 20180607

REACTIONS (5)
  - Chest pain [Unknown]
  - Pneumonia [Recovered/Resolved]
  - Sputum discoloured [Unknown]
  - Localised infection [Unknown]
  - Pain in extremity [Unknown]
